FAERS Safety Report 14007472 (Version 1)
Quarter: 2017Q3

REPORT INFORMATION
  Report Type: Spontaneous
  Country: JP (occurrence: JP)
  Receive Date: 20170925
  Receipt Date: 20170925
  Transmission Date: 20171128
  Serious: Yes (Hospitalization)
  Sender: FDA-Public Use
  Company Number: JP-ELI_LILLY_AND_COMPANY-JP201708003706

PATIENT
  Age: 82 Year
  Sex: Male
  Weight: 45 kg

DRUGS (9)
  1. PARIET [Concomitant]
     Active Substance: RABEPRAZOLE SODIUM
     Indication: GASTRIC ULCER
     Dosage: 10 MG, DAILY
     Route: 048
     Dates: start: 20161109
  2. BAYASPIRIN [Suspect]
     Active Substance: ASPIRIN
     Indication: CORONARY ARTERY OCCLUSION
     Dosage: 100 MG, DAILY
     Route: 048
  3. NIFEDIPINE. [Concomitant]
     Active Substance: NIFEDIPINE
     Dosage: 40 MG, DAILY
     Route: 048
     Dates: start: 20161111
  4. PRASUGREL HYDROCHLORIDE [Suspect]
     Active Substance: PRASUGREL HYDROCHLORIDE
     Dosage: 2.5 MG, DAILY
     Route: 048
     Dates: start: 20161115, end: 20161122
  5. BISOPROLOL                         /00802602/ [Concomitant]
     Active Substance: BISOPROLOL
     Dosage: 2.5 MG, DAILY
     Route: 048
     Dates: start: 20161114
  6. PRASUGREL HYDROCHLORIDE [Suspect]
     Active Substance: PRASUGREL HYDROCHLORIDE
     Indication: CORONARY ARTERY OCCLUSION
     Dosage: 3.75 MG, DAILY
     Route: 065
  7. HEPARIN SODIUM. [Suspect]
     Active Substance: HEPARIN SODIUM
     Indication: CEREBRAL INFARCTION
     Dosage: 10 ML, UNKNOWN
     Route: 042
     Dates: start: 20161108, end: 20161111
  8. NIFEDIPINE. [Concomitant]
     Active Substance: NIFEDIPINE
     Indication: AORTIC DISSECTION
     Dosage: 40 MG, BID
     Route: 048
     Dates: start: 20161109, end: 20161110
  9. BISOPROLOL                         /00802602/ [Concomitant]
     Active Substance: BISOPROLOL
     Indication: CORONARY ARTERY OCCLUSION
     Dosage: 1.25 MG, DAILY
     Route: 048
     Dates: start: 20161109, end: 20161113

REACTIONS (1)
  - Aortic dissection [Recovering/Resolving]

NARRATIVE: CASE EVENT DATE: 20161111
